FAERS Safety Report 5369693-9 (Version None)
Quarter: 2007Q2

REPORT INFORMATION
  Report Type: 
  Country: None (occurrence: None)
  Receive Date: 20070625
  Receipt Date: 20070613
  Transmission Date: 20071010
  Serious: Yes (Other)
  Sender: FDA-Public Use
  Company Number: JP-PFIZER INC-2007049358

PATIENT
  Sex: Female

DRUGS (1)
  1. ZITHROMAC [Suspect]
     Route: 048

REACTIONS (1)
  - HAEMATOCHEZIA [None]
